FAERS Safety Report 3995468 (Version 5)
Quarter: 2017Q4

REPORT INFORMATION
  Report Type: Spontaneous
  Country: JP (occurrence: JP)
  Receive Date: 20030909
  Receipt Date: 20171016
  Transmission Date: 20180321
  Serious: Yes (Hospitalization, Other)
  Sender: FDA-Public Use
  Company Number: JP-BRISTOL-MYERS SQUIBB COMPANY-12368874

PATIENT
  Age: 16 Year
  Sex: Male

DRUGS (5)
  1. IFOSFAMIDE. [Suspect]
     Active Substance: IFOSFAMIDE
     Indication: PINEAL GERMINOMA
     Dosage: 1800 MG, UNK
     Route: 042
     Dates: start: 20000902, end: 20001117
  2. ETOPOSIDE. [Suspect]
     Active Substance: ETOPOSIDE
     Indication: PINEAL GERMINOMA
     Dosage: 280 MG, UNK
     Route: 042
     Dates: start: 19980730, end: 20001117
  3. RADIATION THERAPY [Concomitant]
     Active Substance: RADIATION THERAPY
     Indication: PINEAL GERMINOMA
     Dosage: 24 GY
     Route: 065
     Dates: start: 200206
  4. PARAPLATIN [Suspect]
     Active Substance: CARBOPLATIN
     Indication: PINEAL GERMINOMA
     Dosage: 830 MG, UNK
     Route: 042
     Dates: start: 19980730, end: 19981026
  5. RANDA [Suspect]
     Active Substance: CISPLATIN
     Indication: PINEAL GERMINOMA
     Dosage: 40 MG, UNK
     Route: 042
     Dates: start: 20000902, end: 20001117

REACTIONS (1)
  - Chronic myeloid leukaemia [Recovered/Resolved]

NARRATIVE: CASE EVENT DATE: 20020607
